FAERS Safety Report 10207091 (Version 1)
Quarter: 2014Q2

REPORT INFORMATION
  Report Type: Spontaneous
  Country: US (occurrence: US)
  Receive Date: 20140530
  Receipt Date: 20140530
  Transmission Date: 20141212
  Serious: Yes (Hospitalization)
  Sender: FDA-Public Use
  Company Number: US-TARO-2014P1004491

PATIENT
  Age: 70 Year
  Sex: Male
  Weight: 104.78 kg

DRUGS (2)
  1. PHENYTOIN SODIUM EXTENDED CAPSULES USP 100MG [Suspect]
     Indication: CONVULSION
     Route: 048
     Dates: end: 20140517
  2. PHENYTOIN SODIUM EXTENDED CAPSULES USP 100MG [Suspect]
     Indication: CONVULSION
     Route: 048
     Dates: start: 20140517

REACTIONS (3)
  - Respiratory failure [Recovering/Resolving]
  - Wrong technique in drug usage process [Unknown]
  - Pneumonia [Recovering/Resolving]
